FAERS Safety Report 7942696-3 (Version None)
Quarter: 2011Q4

REPORT INFORMATION
  Report Type: 
  Country: None (occurrence: None)
  Receive Date: 20111122
  Receipt Date: 20110809
  Transmission Date: 20120403
  Serious: Yes (Other)
  Sender: FDA-Public Use
  Company Number: PHEH2011US01195

PATIENT
  Age: 52 Year
  Sex: Female
  Weight: 68.0396 kg

DRUGS (11)
  1. GILENYA [Suspect]
     Dosage: 0.5 MG, QD
  2. CELEBREX [Concomitant]
  3. PERCOCET [Concomitant]
  4. CYMBALTA [Concomitant]
  5. MIRALAX [Concomitant]
  6. VALTREX [Concomitant]
  7. KLONOPIN [Concomitant]
  8. NUVIGIL [Concomitant]
  9. ASPIRIN [Concomitant]
  10. CALTRATE (CALCIUM CARBONATE) [Concomitant]
  11. LYRICA [Concomitant]

REACTIONS (1)
  - HERPES ZOSTER [None]
